FAERS Safety Report 6225703-8 (Version None)
Quarter: 2009Q2

REPORT INFORMATION
  Report Type: 
  Country: None (occurrence: None)
  Receive Date: 20090612
  Receipt Date: 20090430
  Transmission Date: 20091009
  Serious: No
  Sender: FDA-Public Use
  Company Number: US-ABBOTT-09P-163-0570977-00

PATIENT
  Sex: Male
  Weight: 100.79 kg

DRUGS (5)
  1. HUMIRA [Suspect]
     Indication: CROHN'S DISEASE
     Dosage: LOADING DOSE OF 160 MG ON 03 APR 2009
     Route: 058
     Dates: start: 20090403, end: 20090403
  2. HUMIRA [Suspect]
     Dates: start: 20090417
  3. CYMBALTA [Concomitant]
     Indication: DEPRESSION
     Dosage: UNKNOWN
     Route: 048
  4. TRAZODONE HCL [Concomitant]
     Indication: DRUG USE FOR UNKNOWN INDICATION
     Dosage: UNKNOWN
     Route: 048
  5. CRESTOR [Concomitant]
     Indication: HYPERLIPIDAEMIA
     Dosage: UNKNOWN
     Route: 048

REACTIONS (1)
  - FREQUENT BOWEL MOVEMENTS [None]
